FAERS Safety Report 21878038 (Version 2)
Quarter: 2023Q1

REPORT INFORMATION
  Report Type: Spontaneous
  Country: BR (occurrence: BR)
  Receive Date: 20230118
  Receipt Date: 20230320
  Transmission Date: 20230418
  Serious: Yes (Other)
  Sender: FDA-Public Use
  Company Number: BR-002147023-NVSC2023BR009598

PATIENT
  Age: 70 Year

DRUGS (1)
  1. MAXITROL [Suspect]
     Active Substance: DEXAMETHASONE\NEOMYCIN SULFATE\POLYMYXIN B SULFATE
     Indication: Infection
     Dosage: 5 ML
     Route: 065

REACTIONS (3)
  - Lens dislocation [Unknown]
  - Visual impairment [Unknown]
  - Product label issue [Unknown]
